FAERS Safety Report 5133626-0 (Version None)
Quarter: 2006Q4

REPORT INFORMATION
  Report Type: 
  Country: None (occurrence: None)
  Receive Date: 20061024
  Receipt Date: 20061012
  Transmission Date: 20070319
  Serious: Yes (Other)
  Sender: FDA-Public Use
  Company Number: PHEH2006US12830

PATIENT
  Sex: Female

DRUGS (3)
  1. ZOMETA [Suspect]
     Indication: BREAST CANCER
     Dosage: UNK, Q 6 MONTHS
     Dates: start: 20050401, end: 20060401
  2. ZYRTEC [Concomitant]
  3. NORVASC [Concomitant]

REACTIONS (2)
  - GASTRIC HAEMORRHAGE [None]
  - HAEMATOCHEZIA [None]
